FAERS Safety Report 8089199-6 (Version None)
Quarter: 2012Q1

REPORT INFORMATION
  Report Type: 
  Country: None (occurrence: None)
  Receive Date: 20120128
  Receipt Date: 20110616
  Transmission Date: 20120608
  Serious: No
  Sender: FDA-Public Use
  Company Number: US-ABBOTT-11P-163-0732977-00

PATIENT
  Sex: Male
  Weight: 68.1 kg

DRUGS (12)
  1. DIOVAN [Concomitant]
     Indication: HYPERTENSION
     Dates: start: 20110301
  2. HUMIRA [Suspect]
     Dates: start: 20110607, end: 20110607
  3. KLOR-CON [Concomitant]
     Indication: MINERAL SUPPLEMENTATION
  4. TRIAMTERENE AND HYDROCHLOROTHIAZIDE [Concomitant]
     Indication: HYPERTENSION
     Dates: start: 20110301
  5. CITALOPRAM [Concomitant]
     Indication: AFFECTIVE DISORDER
  6. WARFARIN SODIUM [Concomitant]
     Indication: THROMBOSIS
     Dates: start: 20090901
  7. LISINOPRIL [Suspect]
     Indication: HYPERTENSION
     Dates: start: 20110101, end: 20110301
  8. ASACOL [Concomitant]
     Indication: CROHN'S DISEASE
  9. FUROSEMIDE [Concomitant]
     Indication: PROPHYLAXIS URINARY TRACT INFECTION
  10. HUMIRA [Suspect]
     Indication: CROHN'S DISEASE
     Dates: start: 20110524, end: 20110524
  11. OMEPRAZOLE [Concomitant]
     Indication: GASTRIC PH DECREASED
  12. FERROUS SULFATE TAB [Concomitant]
     Indication: IRON DEFICIENCY
     Dates: start: 20100101

REACTIONS (2)
  - PRURITUS [None]
  - COUGH [None]
